FAERS Safety Report 9500264 (Version 1)
Quarter: 2013Q1

REPORT INFORMATION
  Report Type: Spontaneous
  Country: US (occurrence: None)
  Receive Date: 20130129
  Receipt Date: 20130129
  Transmission Date: 20140127
  Serious: Yes (Other)
  Sender: FDA-Public Use
  Company Number: 1000028745

PATIENT
  Age: 63 Year
  Sex: Female
  Weight: 101.8 kg

DRUGS (13)
  1. BYSTOLIC [Suspect]
     Indication: HYPERTENSION
     Route: 048
     Dates: start: 20110525, end: 20110528
  2. NORVASC [Suspect]
     Indication: HYPERTENSION
     Route: 048
  3. NORVASC [Suspect]
     Indication: CARDIAC DISORDER
     Route: 048
  4. PHENOBARBITAL (PHENOBARBITAL) [Concomitant]
  5. TOPAMAX (TOPIRAMATE) [Concomitant]
  6. DIGOXIN (DIGOXIN) [Concomitant]
  7. DONNATAL (DONNATAL) [Concomitant]
  8. RESVERATROL (RESVERATROL) [Concomitant]
  9. ALPHA LIPOIC ACID (THIOCTIC ACID) [Concomitant]
  10. COCONUT OIL (COCOS NUCIFERA OIL) [Concomitant]
  11. CHLORELLA (CHLORELLA) [Concomitant]
  12. OMEGA 3 FISH OIL (FISH OIL) [Concomitant]
  13. ACETYLCARNITINE (ACETYLCARNITINE) [Concomitant]

REACTIONS (10)
  - Pulmonary oedema [None]
  - Oedema [None]
  - Cough [None]
  - Abdominal distension [None]
  - Unevaluable event [None]
  - Increased upper airway secretion [None]
  - Dyspnoea [None]
  - Oedema peripheral [None]
  - Hypertension [None]
  - Sinus tachycardia [None]
